FAERS Safety Report 7024957-8 (Version None)
Quarter: 2010Q4

REPORT INFORMATION
  Report Type: 
  Country: None (occurrence: None)
  Receive Date: 20101001
  Receipt Date: 20100929
  Transmission Date: 20110411
  Serious: Yes (Other)
  Sender: FDA-Public Use
  Company Number: US-BRISTOL-MYERS SQUIBB COMPANY-15307739

PATIENT
  Age: 81 Year

DRUGS (9)
  1. COUMADIN [Suspect]
  2. CRESTOR [Suspect]
  3. ENALAPRIL MALEATE [Suspect]
  4. LANOXIN [Suspect]
  5. LASIX [Suspect]
  6. POTASSIUM [Suspect]
  7. MAALOX [Suspect]
  8. NAMENDA [Suspect]
  9. EXELON [Suspect]
     Dosage: EXELON PATCH

REACTIONS (8)
  - BLADDER DILATATION [None]
  - BUNDLE BRANCH BLOCK LEFT [None]
  - CARDIAC FAILURE [None]
  - CONSTIPATION [None]
  - DECREASED APPETITE [None]
  - GASTRIC DISORDER [None]
  - NEUROPATHY PERIPHERAL [None]
  - WEIGHT DECREASED [None]
